FAERS Safety Report 17999556 (Version 2)
Quarter: 2020Q3

REPORT INFORMATION
  Report Type: Spontaneous
  Country: US (occurrence: US)
  Receive Date: 20200709
  Receipt Date: 20200721
  Transmission Date: 20201103
  Serious: Yes (Hospitalization)
  Sender: FDA-Public Use
  Company Number: US-ACTELION-A-US2020-206844

PATIENT
  Age: 2 Year
  Sex: Male
  Weight: 12.4 kg

DRUGS (13)
  1. ZOSYN [Concomitant]
     Active Substance: PIPERACILLIN SODIUM\TAZOBACTAM SODIUM
  2. GLYCOLAX [Concomitant]
     Active Substance: POLYETHYLENE GLYCOL 3350
     Dosage: 0.5 UNK, QD
  3. CALMOSEPTINE [MENTHOL;ZINC OXIDE] [Concomitant]
     Dosage: 1 UNK, QID
  4. SILDENAFIL. [Concomitant]
     Active Substance: SILDENAFIL
     Dosage: 10 MG, TID
     Route: 048
  5. OMEPRAZOLE. [Concomitant]
     Active Substance: OMEPRAZOLE
     Dosage: 5 ML, QD
  6. PULMICORT TURBUHALER [Concomitant]
     Active Substance: BUDESONIDE
     Dosage: 1 ML, BID
  7. LORATADINE. [Concomitant]
     Active Substance: LORATADINE
     Dosage: 5 ML, QD
  8. HYDROCORTISONE. [Concomitant]
     Active Substance: HYDROCORTISONE
  9. FAMOTIDINE. [Concomitant]
     Active Substance: FAMOTIDINE
  10. TRACLEER [Suspect]
     Active Substance: BOSENTAN
     Indication: PRODUCT USED FOR UNKNOWN INDICATION
     Dosage: 16 MG, BID
     Route: 048
     Dates: start: 20200221
  11. FUROSEMIDE. [Concomitant]
     Active Substance: FUROSEMIDE
  12. RANITIDINE. [Concomitant]
     Active Substance: RANITIDINE
  13. TRIAMCINOLONE ACETONIDE. [Concomitant]
     Active Substance: TRIAMCINOLONE ACETONIDE

REACTIONS (10)
  - Abdominal adhesions [Recovered/Resolved]
  - Feeding intolerance [Recovered/Resolved]
  - Complication associated with device [Recovered/Resolved]
  - Abdominal distension [Recovered/Resolved]
  - Intestinal obstruction [Recovered/Resolved]
  - Constipation [Recovered/Resolved]
  - Small intestinal resection [Unknown]
  - Gastrointestinal necrosis [Recovered/Resolved]
  - Volvulus of small bowel [Recovered/Resolved]
  - Intestinal adhesion lysis [Unknown]

NARRATIVE: CASE EVENT DATE: 20200511
